FAERS Safety Report 4460639-4 (Version None)
Quarter: 2004Q3

REPORT INFORMATION
  Report Type: 
  Country: None (occurrence: None)
  Receive Date: 20040928
  Receipt Date: 20040709
  Transmission Date: 20050211
  Serious: No
  Sender: FDA-Public Use
  Company Number: US-GLAXOSMITHKLINE-A0517676A

PATIENT
  Age: 56 Year

DRUGS (4)
  1. ADVAIR DISKUS 100/50 [Suspect]
     Indication: INFLAMMATION
     Dosage: 1PUFF TWICE PER DAY
     Route: 055
     Dates: start: 20040708
  2. NASAL SPRAY [Concomitant]
  3. PROTONIX [Concomitant]
  4. ANTIHISTAMINE [Concomitant]

REACTIONS (1)
  - COUGH [None]
